FAERS Safety Report 18643533 (Version 3)
Quarter: 2021Q1

REPORT INFORMATION
  Report Type: Report from Study
  Country: US (occurrence: US)
  Receive Date: 20201221
  Receipt Date: 20210318
  Transmission Date: 20210419
  Serious: Yes (Death, Hospitalization)
  Sender: FDA-Public Use
  Company Number: US-TRAVERE THERAPEUTICS, INC.-2020RTN00163

PATIENT
  Age: 1 Year
  Sex: Female
  Weight: 6.28 kg

DRUGS (6)
  1. LEVETIRACETAM. [Concomitant]
     Active Substance: LEVETIRACETAM
  2. AMOXICILLIN/CLAVULANATE [Concomitant]
     Active Substance: AMOXICILLIN\CLAVULANATE POTASSIUM
  3. ACETAMINOPHEN. [Concomitant]
     Active Substance: ACETAMINOPHEN
  4. CHOLIC ACID [Suspect]
     Active Substance: CHOLIC ACID
     Indication: CEREBROHEPATORENAL SYNDROME
     Dosage: 50 MG, 1X/DAY
     Dates: start: 20200415, end: 20210115
  5. PHENOBARBITAL. [Concomitant]
     Active Substance: PHENOBARBITAL
  6. GLYCOPYRROLATE. [Concomitant]
     Active Substance: GLYCOPYRROLATE

REACTIONS (4)
  - Systemic inflammatory response syndrome [Recovering/Resolving]
  - Chronic respiratory failure [Unknown]
  - Respiratory arrest [Fatal]
  - Tachycardia [Recovering/Resolving]

NARRATIVE: CASE EVENT DATE: 202012
